FAERS Safety Report 21464433 (Version 1)
Quarter: 2022Q4

REPORT INFORMATION
  Report Type: Spontaneous
  Country: GB (occurrence: GB)
  Receive Date: 20221017
  Receipt Date: 20221017
  Transmission Date: 20230112
  Serious: Yes (Disabling)
  Sender: FDA-Public Use
  Company Number: None

PATIENT
  Age: 69 Year
  Sex: Female
  Weight: 54 kg

DRUGS (31)
  1. PREGABALIN [Suspect]
     Active Substance: PREGABALIN
     Indication: Product used for unknown indication
     Dosage: USE IN ADD...
     Dates: start: 20220316
  2. MIDAZOLAM HYDROCHLORIDE [Concomitant]
     Active Substance: MIDAZOLAM HYDROCHLORIDE
     Indication: Product used for unknown indication
     Dosage: USE AS DIRECTED
     Dates: start: 20220824, end: 20220825
  3. CALCIUM CARBONATE [Concomitant]
     Active Substance: CALCIUM CARBONATE
     Indication: Product used for unknown indication
     Dosage: 2-3 TIMES/DAY
     Dates: start: 20190510
  4. CHLORHEXIDINE GLUCONATE [Concomitant]
     Active Substance: CHLORHEXIDINE GLUCONATE
     Indication: Product used for unknown indication
     Dosage: ANTIMICROBIAL TO WASH BODY AND HAIR WITH DAILY ...
     Dates: start: 20220909
  5. AMOXICILLIN\CLAVULANATE POTASSIUM [Concomitant]
     Active Substance: AMOXICILLIN\CLAVULANATE POTASSIUM
     Indication: Product used for unknown indication
     Dates: start: 20220714, end: 20220721
  6. CODEINE PHOSPHATE [Concomitant]
     Active Substance: CODEINE PHOSPHATE
     Indication: Product used for unknown indication
     Dosage: ONE OR TWO TABLETS  TO BE TAKEN UP TO FOUR TIME...
     Dates: start: 20220106
  7. CODEINE PHOSPHATE [Concomitant]
     Active Substance: CODEINE PHOSPHATE
     Dosage: ONE OR TWO TABLETS  TO BE TAKEN UP TO FOUR TIME...
     Dates: start: 20220106
  8. FERROUS SULFATE [Concomitant]
     Active Substance: FERROUS SULFATE
     Indication: Product used for unknown indication
     Dosage: ONE DAILY INITIALLY INCREASING TO BE TAKEN ...
     Dates: start: 20220728, end: 20220825
  9. FLUTICASONE PROPIONATE [Concomitant]
     Active Substance: FLUTICASONE PROPIONATE
     Indication: Product used for unknown indication
     Dosage: USE AS DIRECTED
     Dates: start: 20210202
  10. HALOPERIDOL [Concomitant]
     Active Substance: HALOPERIDOL
     Indication: Product used for unknown indication
     Dosage: 1.5-5MG IN SYRINGE DRIVER OVER 24HRS +/OR 0.5-1...
     Dates: start: 20220926
  11. HALOPERIDOL [Concomitant]
     Active Substance: HALOPERIDOL
     Dosage: 1.5-5MG IN SYRINGE DRIVER OVER 24HRS +/OR 0.5-1...
     Dates: start: 20220926
  12. HYDROCORTISONE [Concomitant]
     Active Substance: HYDROCORTISONE
     Indication: Product used for unknown indication
     Dosage: TO BE APPLIED THINLY TO THE AFFECTED AREA(S) ONCE- TWICE A DAY
     Dates: start: 20220719, end: 20220729
  13. BUTYLSCOPOLAMINE BROMIDE [Concomitant]
     Active Substance: BUTYLSCOPOLAMINE BROMIDE
     Indication: Product used for unknown indication
     Dosage: 20-120MG IN SYRINGE DRIVER OVER 24HOURS +/OR 20...
     Dates: start: 20220926
  14. BUTYLSCOPOLAMINE BROMIDE [Concomitant]
     Active Substance: BUTYLSCOPOLAMINE BROMIDE
     Dosage: 20-120MG IN SYRINGE DRIVER OVER 24HOURS +/OR 20...
     Dates: start: 20220926
  15. POLYETHYLENE GLYCOL 3350\POTASSIUM CHLORIDE\SODIUM BICARBONATE\SODIUM [Concomitant]
     Active Substance: POLYETHYLENE GLYCOL 3350\POTASSIUM CHLORIDE\SODIUM BICARBONATE\SODIUM CHLORIDE
     Indication: Product used for unknown indication
     Dosage: TAKE ONE OR TWO SACHETS DISSOLVED IN WATER (125...
     Dates: start: 20210524
  16. POLYETHYLENE GLYCOL 3350\POTASSIUM CHLORIDE\SODIUM BICARBONATE\SODIUM [Concomitant]
     Active Substance: POLYETHYLENE GLYCOL 3350\POTASSIUM CHLORIDE\SODIUM BICARBONATE\SODIUM CHLORIDE
     Dosage: TAKE ONE OR TWO SACHETS DISSOLVED IN WATER (125...
     Dates: start: 20210524
  17. FENTANYL [Concomitant]
     Active Substance: FENTANYL
     Indication: Product used for unknown indication
     Dosage: TO NO...
     Dates: start: 20220309
  18. MIDAZOLAM [Concomitant]
     Active Substance: MIDAZOLAM
     Indication: Product used for unknown indication
     Dosage: 10-20MG VIA SYRINGE DRIVER OVER 24 HOURS AND/OR...
     Dates: start: 20220926
  19. MIDAZOLAM [Concomitant]
     Active Substance: MIDAZOLAM
     Dosage: 10-20MG VIA SYRINGE DRIVER OVER 24 HOURS AND/OR...
     Dates: start: 20220926
  20. MORPHINE SULFATE [Concomitant]
     Active Substance: MORPHINE SULFATE
     Indication: Product used for unknown indication
     Dosage: 40-120MG VIA SYRINGE DRIVER OVER 24HRS AND/OR 2...
     Dates: start: 20210331
  21. MORPHINE SULFATE [Concomitant]
     Active Substance: MORPHINE SULFATE
     Dosage: 40-120MG VIA SYRINGE DRIVER OVER 24HRS AND/OR 2...
     Dates: start: 20210331
  22. MUPIROCIN [Concomitant]
     Active Substance: MUPIROCIN
     Indication: Product used for unknown indication
     Dosage: APPLY FOR 5 DAYS
     Dates: start: 20220909, end: 20220914
  23. NITROFURANTOIN [Concomitant]
     Active Substance: NITROFURANTOIN
     Indication: Product used for unknown indication
     Dates: start: 20211008, end: 20220903
  24. OMEPRAZOLE [Concomitant]
     Active Substance: OMEPRAZOLE
     Indication: Product used for unknown indication
     Dosage: TO REDUCE ST...
     Dates: start: 20210420
  25. ONDANSETRON [Concomitant]
     Active Substance: ONDANSETRON
     Indication: Product used for unknown indication
     Dosage: TO BE TAKEN UP TO FOUR TIMES A DAY A...
     Dates: start: 20210629
  26. ACETAMINOPHEN [Concomitant]
     Active Substance: ACETAMINOPHEN
     Indication: Product used for unknown indication
     Dosage: ONE -TWO TABLETS TO BE TAKEN UP TO A MAXIMUM OF ...
     Dates: start: 20210420
  27. AMDINOCILLIN PIVOXIL [Concomitant]
     Active Substance: AMDINOCILLIN PIVOXIL
     Indication: Infection
     Dosage: TAKE TWO TABLETS FOR THE FIRST DOSE, THEN ONE TABLET THREE TIMES A DAY FOR 7 DAYS TO TREAT INFECTION
     Dates: start: 20220912, end: 20220921
  28. RAMIPRIL [Concomitant]
     Active Substance: RAMIPRIL
     Indication: Product used for unknown indication
     Dosage: AT NIGHT
     Dates: start: 20190510
  29. SALIVIX [Concomitant]
     Indication: Dry mouth
     Dosage: SUCK
     Dates: start: 20220926
  30. TRIMETHOPRIM [Concomitant]
     Active Substance: TRIMETHOPRIM
     Indication: Product used for unknown indication
     Dosage: AS DIRECTED
     Dates: start: 20220824
  31. WATER [Concomitant]
     Active Substance: WATER
     Indication: Product used for unknown indication
     Dosage: USE TO MIX WITH DRUGS IN SYRINGE DRIVER
     Dates: start: 20220926

REACTIONS (1)
  - Tonic clonic movements [Recovered/Resolved]

NARRATIVE: CASE EVENT DATE: 20220927
